FAERS Safety Report 10568212 (Version 2)
Quarter: 2014Q4

REPORT INFORMATION
  Report Type: Spontaneous
  Country: JP (occurrence: None)
  Receive Date: 20141104
  Receipt Date: 20141125
  Transmission Date: 20150529
  Serious: Yes (Hospitalization)
  Sender: FDA-Public Use
  Company Number: JP-017535

PATIENT
  Age: 90 Year
  Sex: Male
  Weight: 53 kg

DRUGS (1)
  1. DEGARELIX (GONAX) (240MG,80-MG, 80MG) [Suspect]
     Active Substance: DEGARELIX
     Indication: PROSTATE CANCER METASTATIC
     Route: 058
     Dates: start: 20130725, end: 20130725

REACTIONS (3)
  - Bacterial sepsis [None]
  - Urosepsis [None]
  - Disseminated intravascular coagulation [None]

NARRATIVE: CASE EVENT DATE: 20130919
